FAERS Safety Report 18498603 (Version 1)
Quarter: 2020Q4

REPORT INFORMATION
  Report Type: Report from Study
  Country: US (occurrence: US)
  Receive Date: 20201112
  Receipt Date: 20201112
  Transmission Date: 20210114
  Serious: Yes (Hospitalization)
  Sender: FDA-Public Use
  Company Number: US-TAKEDA-US202032456

PATIENT
  Sex: Female
  Weight: 77.1 kg

DRUGS (4)
  1. PRENATAL VITAMINS [MINERALS NOS;VITAMINS NOS] [Concomitant]
     Active Substance: MINERALS\VITAMINS
     Dosage: UNK
     Route: 065
  2. LEVOTHYROXINE. [Concomitant]
     Active Substance: LEVOTHYROXINE
     Dosage: UNK
     Route: 065
  3. KALBITOR [Suspect]
     Active Substance: ECALLANTIDE
     Indication: IMMUNE SYSTEM DISORDER
     Dosage: 30 MILLIGRAM, AS REQ^D
     Route: 058
     Dates: start: 20170511
  4. CELEXA [CELECOXIB] [Concomitant]
     Active Substance: CELECOXIB
     Dosage: UNK
     Route: 065

REACTIONS (2)
  - Hereditary angioedema [Unknown]
  - Vasculitis [Unknown]
